FAERS Safety Report 7335847-5 (Version None)
Quarter: 2011Q1

REPORT INFORMATION
  Report Type: 
  Country: None (occurrence: None)
  Receive Date: 20110307
  Receipt Date: 20110302
  Transmission Date: 20110831
  Serious: Yes (Other)
  Sender: FDA-Public Use
  Company Number: DE-MERCK-1103DEU00010

PATIENT
  Sex: Female

DRUGS (2)
  1. JANUMET [Suspect]
     Route: 048
     Dates: start: 20090101
  2. INSULIN [Concomitant]
     Route: 065

REACTIONS (2)
  - GASTRIC CANCER [None]
  - MALIGNANT PERITONEAL NEOPLASM [None]
